FAERS Safety Report 26069262 (Version 1)
Quarter: 2025Q4

REPORT INFORMATION
  Report Type: Spontaneous
  Country: US (occurrence: US)
  Receive Date: 20251120
  Receipt Date: 20251120
  Transmission Date: 20260118
  Serious: No
  Sender: AMNEAL
  Company Number: US-AMNEAL PHARMACEUTICALS-2025-AMRX-04167

PATIENT

DRUGS (3)
  1. CREXONT [Suspect]
     Active Substance: CARBIDOPA\LEVODOPA
     Indication: Parkinson^s disease
     Dosage: 70/280MG, 2 CAPSULES 3 TIMES A DAY ALONG WITH 52.5/210MG (UNKNOWN DOSE)
     Route: 048
  2. CREXONT [Suspect]
     Active Substance: CARBIDOPA\LEVODOPA
     Dosage: 70/280MG, 1 CAPSULE 3 TIMES A DAY ALONG WITH 52.5/210MG (UNKNOWN DOSE)
     Route: 048
  3. CREXONT [Suspect]
     Active Substance: CARBIDOPA\LEVODOPA
     Dosage: UNK, 2 /DAY
     Route: 048

REACTIONS (2)
  - Muscle spasms [Recovered/Resolved]
  - Anticipatory anxiety [Recovered/Resolved]
